FAERS Safety Report 5145624-1 (Version None)
Quarter: 2006Q4

REPORT INFORMATION
  Report Type: 
  Country: None (occurrence: None)
  Receive Date: 20061016
  Receipt Date: 20061016
  Transmission Date: 20070319
  Serious: Yes (Death)
  Sender: FDA-Public Use
  Company Number: None

PATIENT
  Age: 63 Year
  Sex: Female

DRUGS (2)
  1. IRESSA [Suspect]
     Indication: LUNG NEOPLASM MALIGNANT
     Dosage: 250 MG
  2. . [Concomitant]

REACTIONS (3)
  - ABDOMINAL PAIN UPPER [None]
  - DISEASE PROGRESSION [None]
  - PULMONARY HAEMORRHAGE [None]
